FAERS Safety Report 11172767 (Version 2)
Quarter: 2016Q3

REPORT INFORMATION
  Report Type: Spontaneous
  Country: US (occurrence: US)
  Receive Date: 20150608
  Receipt Date: 20160922
  Transmission Date: 20161109
  Serious: Yes (Hospitalization, Other)
  Sender: FDA-Public Use
  Company Number: US-RB PHARMACEUTICALS LIMITED-RB-079874-2015

PATIENT
  Age: 0 Year
  Sex: Male
  Weight: 4.31 kg

DRUGS (4)
  1. SUBUTEX [Suspect]
     Active Substance: BUPRENORPHINE HYDROCHLORIDE
     Dosage: 6 MG, DAILY AT DELIVERY
     Route: 064
     Dates: start: 201412, end: 20141219
  2. SUBUTEX [Suspect]
     Active Substance: BUPRENORPHINE HYDROCHLORIDE
     Indication: DRUG ABUSE
     Dosage: 4 MG, DAILY THORUGH OUT PREGNANCY
     Route: 064
     Dates: start: 201403, end: 201412
  3. PRENATAL VITAMINS                  /02014401/ [Suspect]
     Active Substance: VITAMINS
     Indication: PREGNANCY
     Dosage: UNK, DAILY
     Route: 064
     Dates: start: 20140505, end: 20141219
  4. NICOTINE. [Suspect]
     Active Substance: NICOTINE
     Indication: SMOKING CESSATION THERAPY
     Dosage: 10 MG/CATRIDGE, 4 MG DELIVERED AS 4-12 CARTRIDGES, DAILY
     Route: 064
     Dates: start: 20140717, end: 20141219

REACTIONS (5)
  - Foetal exposure during pregnancy [Recovered/Resolved]
  - Drug withdrawal syndrome neonatal [Recovered/Resolved]
  - Macrosomia [Unknown]
  - Hypotonia neonatal [Recovered/Resolved]
  - Agitation neonatal [Recovered/Resolved]

NARRATIVE: CASE EVENT DATE: 201403
